FAERS Safety Report 7381813-3 (Version None)
Quarter: 2011Q1

REPORT INFORMATION
  Report Type: 
  Country: None (occurrence: None)
  Receive Date: 20110329
  Receipt Date: 20110317
  Transmission Date: 20110831
  Serious: Yes (Hospitalization)
  Sender: FDA-Public Use
  Company Number: PHHY2011CZ21314

PATIENT
  Age: 23 Year
  Sex: Female
  Weight: 78 kg

DRUGS (3)
  1. METOCLOPRAMIDE [Suspect]
     Indication: VOMITING
     Dosage: 20 MG, ON FIRST DAY
     Route: 048
     Dates: start: 20110127
  2. METOCLOPRAMIDE [Suspect]
     Dosage: 10 MG, SECOND DAY
     Route: 048
     Dates: end: 20110128
  3. TORECAN [Concomitant]
     Indication: VOMITING
     Dosage: 1 DF, OVERALL

REACTIONS (7)
  - TACHYCARDIA [None]
  - OPISTHOTONUS [None]
  - LIP SWELLING [None]
  - DYSARTHRIA [None]
  - ERYTHEMA [None]
  - CONVULSION [None]
  - BLOOD PRESSURE DECREASED [None]
